FAERS Safety Report 5414605-2 (Version None)
Quarter: 2007Q3

REPORT INFORMATION
  Report Type: 
  Country: None (occurrence: None)
  Receive Date: 20070813
  Receipt Date: 20070730
  Transmission Date: 20080115
  Serious: Yes (Hospitalization)
  Sender: FDA-Public Use
  Company Number: 2007US001767

PATIENT
  Age: 57 Year
  Sex: Male

DRUGS (8)
  1. PROGRAF [Suspect]
     Indication: LIVER TRANSPLANT REJECTION
     Dosage: 1.5 MG, BID, ORAL; 0.5 MG, QOD, ORAL
     Route: 048
     Dates: start: 20061113, end: 20070304
  2. PROGRAF [Suspect]
     Indication: LIVER TRANSPLANT REJECTION
     Dosage: 1.5 MG, BID, ORAL; 0.5 MG, QOD, ORAL
     Route: 048
     Dates: start: 20070304
  3. MYCOPHENOLATE MOFETIL [Suspect]
     Indication: LIVER TRANSPLANT REJECTION
     Dosage: 1000 MG, BID, ORAL; 750 MG, BID, ORAL; 250 MG, BID, ORAL; 5 MG, UID/QD, ORAL
     Route: 048
     Dates: start: 20061120, end: 20070304
  4. MYCOPHENOLATE MOFETIL [Suspect]
     Indication: LIVER TRANSPLANT REJECTION
     Dosage: 1000 MG, BID, ORAL; 750 MG, BID, ORAL; 250 MG, BID, ORAL; 5 MG, UID/QD, ORAL
     Route: 048
     Dates: start: 20070305, end: 20070307
  5. MYCOPHENOLATE MOFETIL [Suspect]
     Indication: LIVER TRANSPLANT REJECTION
     Dosage: 1000 MG, BID, ORAL; 750 MG, BID, ORAL; 250 MG, BID, ORAL; 5 MG, UID/QD, ORAL
     Route: 048
     Dates: start: 20070110
  6. MYCOPHENOLATE MOFETIL [Suspect]
     Indication: LIVER TRANSPLANT REJECTION
     Dosage: 1000 MG, BID, ORAL; 750 MG, BID, ORAL; 250 MG, BID, ORAL; 5 MG, UID/QD, ORAL
     Route: 048
     Dates: start: 20070308
  7. PREDNISONE TAB [Suspect]
     Indication: LIVER TRANSPLANT REJECTION
     Dosage: 10 MG,
     Dates: start: 20061113, end: 20070109
  8. METOPROLOL TARTRATE [Concomitant]

REACTIONS (2)
  - CORYNEBACTERIUM INFECTION [None]
  - CYTOMEGALOVIRUS COLITIS [None]
